FAERS Safety Report 13931975 (Version 1)
Quarter: 2017Q3

REPORT INFORMATION
  Report Type: Other
  Country: DE (occurrence: DE)
  Receive Date: 20170904
  Receipt Date: 20170904
  Transmission Date: 20171127
  Serious: Yes (Congenital Anomaly, Other)
  Sender: FDA-Public Use
  Company Number: DE-LUPIN PHARMACEUTICALS INC.-2016-05894

PATIENT
  Age: 1 Day
  Sex: Female
  Weight: 2.32 kg

DRUGS (4)
  1. BELLA HEXAL [Concomitant]
     Active Substance: CYPROTERONE ACETATE\ETHINYL ESTRADIOL
     Indication: CONTRACEPTION
     Dosage: 0.035/2 MG/DAY
     Route: 064
     Dates: start: 20160109, end: 20160204
  2. LEVETIRACETAM. [Suspect]
     Active Substance: LEVETIRACETAM
     Indication: EPILEPSY
     Dosage: 1000 MG, BID (1000-0-1000 MG)
     Route: 064
     Dates: start: 20160109
  3. LEVETIRACETAM. [Suspect]
     Active Substance: LEVETIRACETAM
     Dosage: 2250 MG, QD
     Route: 064
     Dates: end: 20161003
  4. OSPOLOT [Suspect]
     Active Substance: SULTHIAME
     Indication: EPILEPSY
     Dosage: 150 MG, BID
     Route: 064
     Dates: start: 20160109, end: 20161003

REACTIONS (3)
  - Small for dates baby [Unknown]
  - Congenital cyst [Not Recovered/Not Resolved]
  - Foetal exposure during pregnancy [Unknown]

NARRATIVE: CASE EVENT DATE: 20161003
